FAERS Safety Report 10451603 (Version 2)
Quarter: 2015Q1

REPORT INFORMATION
  Report Type: Spontaneous
  Country: US (occurrence: US)
  Receive Date: 20140914
  Receipt Date: 20150120
  Transmission Date: 20150720
  Serious: Yes (Hospitalization)
  Sender: FDA-Public Use
  Company Number: US-LUNDBECK-DKLU1103459

PATIENT
  Age: 5 Year
  Sex: Female

DRUGS (2)
  1. SABRIL [Suspect]
     Active Substance: VIGABATRIN
     Indication: TEMPORAL LOBE EPILEPSY
     Route: 048
     Dates: start: 201308
  2. SABRIL [Suspect]
     Active Substance: VIGABATRIN
     Indication: EPILEPSY

REACTIONS (1)
  - Joint dislocation [Recovered/Resolved]

NARRATIVE: CASE EVENT DATE: 20140611
